FAERS Safety Report 25859675 (Version 1)
Quarter: 2025Q3

REPORT INFORMATION
  Report Type: Spontaneous
  Country: JP (occurrence: JP)
  Receive Date: 20250929
  Receipt Date: 20250929
  Transmission Date: 20251020
  Serious: Yes (Other)
  Sender: AMGEN
  Company Number: JP-AMGEN-JPNSP2025191334

PATIENT
  Age: 69 Year
  Sex: Female

DRUGS (1)
  1. BEVACIZUMAB [Suspect]
     Active Substance: BEVACIZUMAB
     Indication: Ovarian cancer stage III
     Route: 065

REACTIONS (4)
  - Metastases to peritoneum [Unknown]
  - Metastases to lymph nodes [Unknown]
  - B-cell lymphoma [Unknown]
  - Ovarian cancer recurrent [Unknown]
